FAERS Safety Report 25310815 (Version 1)
Quarter: 2025Q2

REPORT INFORMATION
  Report Type: Spontaneous
  Country: GB (occurrence: GB)
  Receive Date: 20250514
  Receipt Date: 20250514
  Transmission Date: 20250716
  Serious: Yes (Other)
  Sender: JOHNSON AND JOHNSON
  Company Number: GB-MHRA-TPP7739761C256759YC1747050589169

PATIENT
  Age: 67 Year
  Sex: Female
  Weight: 64 kg

DRUGS (8)
  1. XARELTO [Suspect]
     Active Substance: RIVAROXABAN
     Indication: Product used for unknown indication
     Dosage: TAKE ONE DAILY WITH FOOD (REPLACES EDOXABAN)
     Route: 048
     Dates: start: 20250320, end: 20250501
  2. Clinitas [Concomitant]
     Indication: Ill-defined disorder
     Dates: start: 20220921
  3. Clinitas [Concomitant]
     Indication: Ill-defined disorder
     Dates: start: 20220921
  4. LEVOTHYROXINE [Concomitant]
     Active Substance: LEVOTHYROXINE
     Indication: Ill-defined disorder
     Dosage: 1 DF, QD
     Dates: start: 20220921
  5. PANTOPRAZOLE [Concomitant]
     Active Substance: PANTOPRAZOLE
     Indication: Ill-defined disorder
     Dosage: 1 DF, QD
     Dates: start: 20230928
  6. ATORVASTATIN [Concomitant]
     Active Substance: ATORVASTATIN
     Indication: Ill-defined disorder
     Dosage: 1 DF, QD
     Dates: start: 20231110
  7. BISOPROLOL [Concomitant]
     Active Substance: BISOPROLOL
     Indication: Ill-defined disorder
     Dosage: 1 DF, QD
     Dates: start: 20240906
  8. ESTRADIOL [Concomitant]
     Active Substance: ESTRADIOL
     Indication: Ill-defined disorder
     Dates: start: 20240916

REACTIONS (1)
  - Dyspepsia [Recovered/Resolved]

NARRATIVE: CASE EVENT DATE: 20250325
